FAERS Safety Report 21619942 (Version 1)
Quarter: 2022Q4

REPORT INFORMATION
  Report Type: Report from Study
  Country: US (occurrence: US)
  Receive Date: 20221121
  Receipt Date: 20221121
  Transmission Date: 20230112
  Serious: No
  Sender: FDA-Public Use
  Company Number: US-ABBVIE-4168616

PATIENT
  Sex: Male

DRUGS (2)
  1. SKYRIZI [Suspect]
     Active Substance: RISANKIZUMAB-RZAA
     Indication: Psoriasis
     Dosage: 150MG
     Route: 058
     Dates: start: 202205, end: 20220628
  2. SKYRIZI [Suspect]
     Active Substance: RISANKIZUMAB-RZAA
     Dosage: 150 MG DOSAGE FORM
     Route: 058

REACTIONS (5)
  - Dry skin [Unknown]
  - Wound haemorrhage [Unknown]
  - Erythema [Unknown]
  - Pruritus [Unknown]
  - Impaired healing [Unknown]
